FAERS Safety Report 9984973 (Version 1)
Quarter: 2014Q1

REPORT INFORMATION
  Report Type: Report from Study
  Country: US (occurrence: US)
  Receive Date: 20140307
  Receipt Date: 20140307
  Transmission Date: 20141002
  Serious: No
  Sender: FDA-Public Use
  Company Number: US-ABBVIE-13P-163-1184532-00

PATIENT
  Age: 56 Year
  Sex: Female
  Weight: 77.18 kg

DRUGS (5)
  1. HUMIRA [Suspect]
     Indication: PSORIATIC ARTHROPATHY
     Dates: start: 20131206
  2. SYNTHROID [Concomitant]
     Indication: HYPOTHYROIDISM
  3. VITAMIN D [Concomitant]
     Indication: VITAMIN SUPPLEMENTATION
  4. ADVIL [Concomitant]
     Indication: HEADACHE
  5. ADVAIR [Concomitant]
     Indication: ASTHMA
     Route: 055

REACTIONS (2)
  - Respiration abnormal [Not Recovered/Not Resolved]
  - Injection site pain [Recovered/Resolved]
